FAERS Safety Report 21973984 (Version 1)
Quarter: 2023Q1

REPORT INFORMATION
  Report Type: Report from Study
  Country: US (occurrence: US)
  Receive Date: 20230209
  Receipt Date: 20230209
  Transmission Date: 20230418
  Serious: Yes (Hospitalization)
  Sender: FDA-Public Use
  Company Number: US-ABBVIE-4299508

PATIENT
  Age: 82 Year
  Sex: Female

DRUGS (12)
  1. VENCLEXTA [Suspect]
     Active Substance: VENETOCLAX
     Indication: Acute myeloid leukaemia
     Route: 048
     Dates: start: 20230121
  2. VITAMIN D [Concomitant]
     Active Substance: VITAMIN D NOS
     Indication: Product used for unknown indication
  3. KEPPRA [Concomitant]
     Active Substance: LEVETIRACETAM
     Indication: Product used for unknown indication
  4. Levothyroxine Sodium Oral Tablet 50  MCG [Concomitant]
     Indication: Product used for unknown indication
  5. Caltrate 600D Plus Minerals  600-8500 MG-UNIT [Concomitant]
     Indication: Product used for unknown indication
  6. levoFLOXacin Oral Tablet 500 MG [Concomitant]
     Indication: Product used for unknown indication
  7. oxyCODONE-Acetaminophen 7.5-325 MG [Concomitant]
     Indication: Product used for unknown indication
  8. AMLODIPINE BESYLATE [Concomitant]
     Active Substance: AMLODIPINE BESYLATE
     Indication: Product used for unknown indication
  9. VITAMIN C [Concomitant]
     Active Substance: ASCORBIC ACID
     Indication: Product used for unknown indication
  10. methylPREDNISolone  4 MG [Concomitant]
     Indication: Product used for unknown indication
  11. METHOCARBAMOL [Concomitant]
     Active Substance: METHOCARBAMOL
     Indication: Product used for unknown indication
  12. valACYclovir HCl  500 MG [Concomitant]
     Indication: Product used for unknown indication

REACTIONS (1)
  - White blood cell count abnormal [Recovering/Resolving]

NARRATIVE: CASE EVENT DATE: 20230101
